FAERS Safety Report 25923560 (Version 2)
Quarter: 2025Q4

REPORT INFORMATION
  Report Type: Report from Study
  Country: EU (occurrence: EU)
  Receive Date: 20251015
  Receipt Date: 20251017
  Transmission Date: 20260118
  Serious: Yes (Other)
  Sender: NOVARTIS
  Company Number: EU-002147023-NVSC2025DE157305

PATIENT
  Sex: Female
  Weight: 61 kg

DRUGS (4)
  1. KISQALI [Suspect]
     Active Substance: RIBOCICLIB SUCCINATE
     Indication: Hormone receptor positive HER2 negative breast cancer
     Dosage: 200 MG, QD (200 MG (TOTAL DAILY DOSE)21 DAYS DAILY INTAKE, 7 DAYS PAUSE
     Route: 048
     Dates: start: 20250721
  2. LETROZOLE [Suspect]
     Active Substance: LETROZOLE
     Indication: Hormone receptor positive HER2 negative breast cancer
     Dosage: 2.5 MG, QD (2.5 MG (TOTAL DAILY DOSE))
     Route: 048
     Dates: start: 20250721
  3. LEVOTHYROXINE SODIUM [Concomitant]
     Active Substance: LEVOTHYROXINE SODIUM
     Indication: Hypothyroidism
     Dosage: 75 UG, QD
     Route: 048
     Dates: start: 20250512, end: 20250719
  4. LEVOTHYROXINE SODIUM [Concomitant]
     Active Substance: LEVOTHYROXINE SODIUM
     Dosage: 25 UG, QD
     Route: 048
     Dates: start: 20250919

REACTIONS (6)
  - Electrocardiogram QT prolonged [Not Recovered/Not Resolved]
  - Leukopenia [Not Recovered/Not Resolved]
  - Nasopharyngitis [Recovered/Resolved]
  - Throat irritation [Recovered/Resolved]
  - Dizziness [Not Recovered/Not Resolved]
  - Somnolence [Not Recovered/Not Resolved]

NARRATIVE: CASE EVENT DATE: 20250811
